FAERS Safety Report 12774666 (Version 1)
Quarter: 2016Q3

REPORT INFORMATION
  Report Type: Spontaneous
  Country: US (occurrence: US)
  Receive Date: 20160923
  Receipt Date: 20160923
  Transmission Date: 20161109
  Serious: No
  Sender: FDA-Public Use
  Company Number: US-MYLANLABS-2015M1034734

PATIENT
  Sex: Female

DRUGS (1)
  1. NITROGLYCERIN TRANSDERMAL DELIVERY SYSTEM [Suspect]
     Active Substance: NITROGLYCERIN
     Indication: CARDIAC DISORDER
     Dosage: 0.4 MG/HR, QD CHANGE QD
     Route: 062
     Dates: start: 201503, end: 20151005

REACTIONS (5)
  - Application site erythema [Recovering/Resolving]
  - Application site warmth [Recovering/Resolving]
  - Application site vesicles [Recovering/Resolving]
  - Application site reaction [Recovering/Resolving]
  - Application site pruritus [Recovering/Resolving]

NARRATIVE: CASE EVENT DATE: 201508
